FAERS Safety Report 5952054-9 (Version None)
Quarter: 2008Q4

REPORT INFORMATION
  Report Type: 
  Country: None (occurrence: None)
  Receive Date: 20081113
  Receipt Date: 20080205
  Transmission Date: 20090506
  Serious: No
  Sender: FDA-Public Use
  Company Number: A0707493A

PATIENT
  Age: 57 Year
  Sex: Female

DRUGS (2)
  1. COREG [Suspect]
     Indication: HYPERTENSION
     Dosage: 25MG TWICE PER DAY
     Route: 048
     Dates: start: 20061001
  2. NO CONCURRENT MEDICATION [Concomitant]

REACTIONS (2)
  - ASTHENIA [None]
  - VISION BLURRED [None]
